FAERS Safety Report 12810432 (Version 1)
Quarter: 2016Q4

REPORT INFORMATION
  Report Type: Spontaneous
  Country: US (occurrence: US)
  Receive Date: 20161004
  Receipt Date: 20161004
  Transmission Date: 20170207
  Serious: Yes (Other)
  Sender: FDA-Public Use
  Company Number: None

PATIENT
  Age: 36 Year
  Sex: Female
  Weight: 103.5 kg

DRUGS (4)
  1. BENADRYL [Concomitant]
     Active Substance: DIPHENHYDRAMINE HYDROCHLORIDE
  2. MIRENA [Suspect]
     Active Substance: LEVONORGESTREL
     Indication: CONTRACEPTION
     Dosage: OTHER OTHER VAGINAL
     Route: 067
     Dates: start: 20140203, end: 20160915
  3. ALEVE [Concomitant]
     Active Substance: NAPROXEN SODIUM
  4. NUVARING [Concomitant]
     Active Substance: ETHINYL ESTRADIOL\ETONOGESTREL

REACTIONS (4)
  - Menorrhagia [None]
  - Activities of daily living impaired [None]
  - Device expulsion [None]
  - Dysmenorrhoea [None]

NARRATIVE: CASE EVENT DATE: 20160915
